FAERS Safety Report 12501175 (Version 1)
Quarter: 2016Q2

REPORT INFORMATION
  Report Type: Spontaneous
  Country: DE (occurrence: DE)
  Receive Date: 20160627
  Receipt Date: 20160627
  Transmission Date: 20160815
  Serious: Yes (Hospitalization)
  Sender: FDA-Public Use
  Company Number: GXKR2016DE001167

PATIENT

DRUGS (1)
  1. COLESTYRAMIN HEXAL [Suspect]
     Active Substance: CHOLESTYRAMINE
     Indication: DIARRHOEA
     Dosage: 4 G, TID

REACTIONS (6)
  - Hypoaesthesia [Unknown]
  - Erythema [Unknown]
  - Nephrolithiasis [Unknown]
  - Pain in extremity [Unknown]
  - Peripheral swelling [Unknown]
  - Burning sensation [Unknown]
